FAERS Safety Report 8217985 (Version 3)
Quarter: 2012Q4

REPORT INFORMATION
  Report Type: Report from Study
  Country: JP (occurrence: JP)
  Receive Date: 20111101
  Receipt Date: 20120907
  Transmission Date: 20130627
  Serious: Yes (Life-Threatening, Hospitalization)
  Sender: FDA-Public Use
  Company Number: JP-PFIZER INC-2011261755

PATIENT
  Age: 78 Year
  Sex: Male

DRUGS (2)
  1. TEMSIROLIMUS [Suspect]
     Indication: RENAL CELL CARCINOMA
     Dosage: 25 mg, weekly
     Route: 041
     Dates: start: 20110721, end: 20110811
  2. CHLORTRIMETON [Concomitant]
     Indication: PROPHYLAXIS
     Dosage: 10 mg, weekly
     Route: 042
     Dates: start: 20110721, end: 20110811

REACTIONS (1)
  - Ileus [Recovered/Resolved]
